FAERS Safety Report 4620508-3 (Version None)
Quarter: 2005Q1

REPORT INFORMATION
  Report Type: 
  Country: None (occurrence: None)
  Receive Date: 20050324
  Receipt Date: 20050309
  Transmission Date: 20050727
  Serious: Yes (Death)
  Sender: FDA-Public Use
  Company Number: 2005-BP-03879BP

PATIENT
  Age: 88 Year
  Sex: Male

DRUGS (9)
  1. FLOMAX [Suspect]
     Indication: DYSURIA
     Dosage: 0.4 MG , PO
     Route: 048
     Dates: start: 20040601
  2. TYLENOL W/ CODEINE NO. 3 [Concomitant]
  3. TYLENOL W/ CODEINE NO. 4 [Concomitant]
  4. PISTONIX [Concomitant]
  5. NEURONTIN [Concomitant]
  6. MOEXIPRIL (MOEXIPRIL) [Concomitant]
  7. DOXAZOSIN (DOXAZOSIN) [Concomitant]
  8. AAAP-CODEINE [Concomitant]
  9. LEVOXYL [Concomitant]

REACTIONS (9)
  - CYSTITIS [None]
  - HALLUCINATION [None]
  - LOSS OF CONSCIOUSNESS [None]
  - PAIN [None]
  - PRURITUS [None]
  - PYREXIA [None]
  - SOMNOLENCE [None]
  - URINARY TRACT INFECTION [None]
  - WEIGHT DECREASED [None]
